FAERS Safety Report 6292428-2 (Version None)
Quarter: 2009Q3

REPORT INFORMATION
  Report Type: 
  Country: None (occurrence: None)
  Receive Date: 20090731
  Receipt Date: 20090722
  Transmission Date: 20100115
  Serious: Yes (Hospitalization)
  Sender: FDA-Public Use
  Company Number: PHHY2009ES30100

PATIENT
  Age: 64 Year
  Sex: Female

DRUGS (4)
  1. ZOMETA [Suspect]
     Dosage: 4 MG EV
     Dates: start: 20090211
  2. ENALAPRIL MALEATE [Concomitant]
  3. OMEPRAZOLE [Concomitant]
  4. CALCIUM [Concomitant]

REACTIONS (2)
  - HYPERPHOSPHATAEMIA [None]
  - HYPOKALAEMIA [None]
